FAERS Safety Report 6553337-4 (Version None)
Quarter: 2010Q1

REPORT INFORMATION
  Report Type: 
  Country: None (occurrence: None)
  Receive Date: 20100127
  Receipt Date: 20090804
  Transmission Date: 20100710
  Serious: No
  Sender: FDA-Public Use
  Company Number: A0796151A

PATIENT
  Age: 28 Year
  Sex: Female
  Weight: 68.9 kg

DRUGS (4)
  1. IMITREX [Suspect]
     Indication: MIGRAINE
     Dosage: 4MG SINGLE DOSE
     Route: 042
     Dates: start: 20090709, end: 20090709
  2. MORPHINE [Concomitant]
  3. FENTANYL [Concomitant]
  4. TYLENOL W/ CODEINE [Concomitant]

REACTIONS (1)
  - DRUG ADMINISTRATION ERROR [None]
